FAERS Safety Report 9079274 (Version 1)
Quarter: 2013Q1

REPORT INFORMATION
  Report Type: Report from Study
  Country: US (occurrence: US)
  Receive Date: 20130130
  Receipt Date: 20130130
  Transmission Date: 20140127
  Serious: No
  Sender: FDA-Public Use
  Company Number: US-ABBOTT-12P-163-0956740-00

PATIENT
  Sex: Female
  Weight: 70.37 kg

DRUGS (6)
  1. HUMIRA 40 MG/ 0.8 ML PRE-FILLED SYRINGE [Suspect]
     Indication: RHEUMATOID ARTHRITIS
     Dates: start: 2004
  2. LIPITOR [Concomitant]
     Indication: BLOOD CHOLESTEROL INCREASED
  3. NIASPAN 500MG [Concomitant]
     Indication: BLOOD CHOLESTEROL INCREASED
  4. IBUPROFEN [Concomitant]
     Indication: PAIN
  5. PREDNISONE [Concomitant]
     Indication: ARTHRITIS
  6. PREDNISONE [Concomitant]
     Indication: ARTHRALGIA

REACTIONS (2)
  - Dry eye [Not Recovered/Not Resolved]
  - Paraesthesia [Not Recovered/Not Resolved]
